FAERS Safety Report 6764902-3 (Version None)
Quarter: 2010Q2

REPORT INFORMATION
  Report Type: 
  Country: None (occurrence: None)
  Receive Date: 20100609
  Receipt Date: 20100503
  Transmission Date: 20101027
  Serious: No
  Sender: FDA-Public Use
  Company Number: 2010010815

PATIENT
  Age: 7 Year
  Sex: Female
  Weight: 30.391 kg

DRUGS (3)
  1. CHILDREN'S ZYRTEC ALLERGY [Suspect]
     Indication: HYPERSENSITIVITY
     Dosage: ONE TEASPOONFUL TWICE DAILY,ORAL
     Route: 048
     Dates: start: 20090905, end: 20100501
  2. CHILDREN'S BENADRYL ALLERGY [Suspect]
     Indication: HYPERSENSITIVITY
     Dosage: ONE TEASPOONFUL TWICE DAILY,ORAL
     Route: 048
     Dates: start: 20090905, end: 20100501
  3. ACETAMINOPHEN [Suspect]
     Indication: DRUG USE FOR UNKNOWN INDICATION
     Dosage: ORAL
     Route: 048

REACTIONS (4)
  - ADVERSE EVENT [None]
  - OFF LABEL USE [None]
  - PRODUCT QUALITY ISSUE [None]
  - URTICARIA [None]
